FAERS Safety Report 11225580 (Version 2)
Quarter: 2015Q3

REPORT INFORMATION
  Report Type: Spontaneous
  Country: GB (occurrence: GB)
  Receive Date: 20150629
  Receipt Date: 20150706
  Transmission Date: 20151125
  Serious: Yes (Other)
  Sender: FDA-Public Use
  Company Number: GB-FRESENIUS KABI-FK201502990

PATIENT
  Age: 69 Year
  Sex: Female

DRUGS (2)
  1. LETROZOLE (MANUFACTURER UNKNOWN) (LETROZOLE) (LETROZOLE) [Suspect]
     Active Substance: LETROZOLE
     Indication: BREAST MASS
     Route: 065
  2. FULVESTRANT [Suspect]
     Active Substance: FULVESTRANT
     Indication: PRODUCT USED FOR UNKNOWN INDICATION

REACTIONS (4)
  - Breast cancer [Unknown]
  - Malignant neoplasm progression [Unknown]
  - Metastases to liver [Unknown]
  - Rash [Unknown]
